FAERS Safety Report 4807080-X (Version None)
Quarter: 2005Q4

REPORT INFORMATION
  Report Type: 
  Country: None (occurrence: None)
  Receive Date: 20051020
  Receipt Date: 20051020
  Transmission Date: 20060501
  Serious: Yes (Hospitalization)
  Sender: FDA-Public Use
  Company Number: None

PATIENT
  Age: 86 Year
  Sex: Male
  Weight: 77.1 kg

DRUGS (7)
  1. CIPRO [Suspect]
  2. LANOXIN [Concomitant]
  3. FUROSEMIDE [Concomitant]
  4. SIMVASTATIN [Concomitant]
  5. ARTIFICIAL TEARS PVA 1.4%/POVIDONE (PF) [Concomitant]
  6. COLCHICINE [Concomitant]
  7. ENALAPRIL MALEATE [Concomitant]

REACTIONS (1)
  - RASH [None]
